FAERS Safety Report 6019602-4 (Version None)
Quarter: 2008Q4

REPORT INFORMATION
  Report Type: 
  Country: None (occurrence: None)
  Receive Date: 20081224
  Receipt Date: 20081223
  Transmission Date: 20090506
  Serious: Yes (Life-Threatening, Other)
  Sender: FDA-Public Use
  Company Number: PHEH2008US11364

PATIENT
  Sex: Female

DRUGS (1)
  1. RECLAST [Suspect]
     Dosage: UNK
     Dates: start: 20081222, end: 20081222

REACTIONS (6)
  - ANXIETY [None]
  - FEELING COLD [None]
  - MALAISE [None]
  - RETCHING [None]
  - TREMOR [None]
  - URINARY INCONTINENCE [None]
